FAERS Safety Report 24254322 (Version 1)
Quarter: 2024Q3

REPORT INFORMATION
  Report Type: Spontaneous
  Country: DE (occurrence: DE)
  Receive Date: 20240827
  Receipt Date: 20240827
  Transmission Date: 20241017
  Serious: Yes (Other)
  Sender: INCYTE
  Company Number: DE-INCYTE CORPORATION-2024IN008756

PATIENT

DRUGS (2)
  1. PEMAZYRE [Suspect]
     Active Substance: PEMIGATINIB
     Indication: Malignant neoplasm of unknown primary site
     Dosage: 13.5 MILLIGRAM
     Route: 065
     Dates: start: 202403
  2. PEMAZYRE [Suspect]
     Active Substance: PEMIGATINIB
     Indication: Metastases to peritoneum

REACTIONS (5)
  - Malignant neoplasm of unknown primary site [Unknown]
  - Metastases to peritoneum [Unknown]
  - Disease recurrence [Unknown]
  - Mental disorder [Unknown]
  - Off label use [Unknown]

NARRATIVE: CASE EVENT DATE: 20240301
